FAERS Safety Report 11413939 (Version 2)
Quarter: 2015Q3

REPORT INFORMATION
  Report Type: Spontaneous
  Country: US (occurrence: US)
  Receive Date: 20150824
  Receipt Date: 20150828
  Transmission Date: 20151125
  Serious: Yes (Death, Hospitalization, Other)
  Sender: FDA-Public Use
  Company Number: US-GLAXOSMITHKLINE-US2015GSK118976

PATIENT
  Age: 53 Year
  Sex: Male

DRUGS (2)
  1. FLOLAN [Suspect]
     Active Substance: EPOPROSTENOL SODIUM
     Indication: PULMONARY ARTERIAL HYPERTENSION
     Dosage: 2 NG/KG/MIN (CONCENTRATION 5000 NG/ML, PUMP RATE 51 ML/DAY, VIAL STRENGTH 0.5 MG), CO
     Route: 042
     Dates: start: 20150813
  2. SILDENAFIL. [Concomitant]
     Active Substance: SILDENAFIL

REACTIONS (8)
  - Faeces discoloured [Unknown]
  - Malaise [Not Recovered/Not Resolved]
  - Hospitalisation [Not Recovered/Not Resolved]
  - Dialysis [Unknown]
  - Unresponsive to stimuli [Unknown]
  - Haematemesis [Unknown]
  - Death [Fatal]
  - Melaena [Unknown]

NARRATIVE: CASE EVENT DATE: 20150823
